FAERS Safety Report 8022319-8 (Version None)
Quarter: 2012Q1

REPORT INFORMATION
  Report Type: 
  Country: None (occurrence: None)
  Receive Date: 20120104
  Receipt Date: 20120102
  Transmission Date: 20120608
  Serious: Yes (Hospitalization)
  Sender: FDA-Public Use
  Company Number: DE-ABBOTT-11P-062-0869649-00

PATIENT
  Sex: Female
  Weight: 66 kg

DRUGS (4)
  1. VITAMIN D [Concomitant]
     Indication: PRODUCT USED FOR UNKNOWN INDICATION
  2. CALCIUM ACETATE [Concomitant]
     Indication: PRODUCT USED FOR UNKNOWN INDICATION
  3. BUDESONIDE [Concomitant]
     Indication: CROHN'S DISEASE
     Dates: start: 20110818, end: 20111028
  4. HUMIRA [Suspect]
     Indication: CROHN'S DISEASE
     Route: 058
     Dates: start: 20110426

REACTIONS (2)
  - INTESTINAL FISTULA [None]
  - ABSCESS INTESTINAL [None]
